FAERS Safety Report 8097409-4 (Version None)
Quarter: 2012Q1

REPORT INFORMATION
  Report Type: 
  Country: None (occurrence: None)
  Receive Date: 20120128
  Receipt Date: 20110621
  Transmission Date: 20120608
  Serious: No
  Sender: FDA-Public Use
  Company Number: US-ABBOTT-11P-163-0734603-00

PATIENT
  Age: 66 Year
  Sex: Female

DRUGS (2)
  1. HUMIRA [Suspect]
     Dosage: SKIPPED DOSE ON 19 JUN 2011
     Route: 058
     Dates: start: 20100901, end: 20110605
  2. HUMIRA [Suspect]
     Indication: PRODUCT USED FOR UNKNOWN INDICATION
     Dosage: 1 IN 2 WKS, SKIPPED DOSE ON 19 JUN 2011
     Route: 058
     Dates: start: 20100901, end: 20110605

REACTIONS (1)
  - BRONCHITIS [None]
